FAERS Safety Report 21267991 (Version 2)
Quarter: 2022Q3

REPORT INFORMATION
  Report Type: Report from Study
  Country: US (occurrence: US)
  Receive Date: 20220829
  Receipt Date: 20220906
  Transmission Date: 20221027
  Serious: Yes (Hospitalization)
  Sender: FDA-Public Use
  Company Number: US-SEATTLE GENETICS-2022SGN07279

PATIENT
  Age: 59 Year
  Sex: Female

DRUGS (2)
  1. TUCATINIB [Suspect]
     Active Substance: TUCATINIB
     Indication: Breast cancer female
     Dosage: UNK
     Route: 065
  2. TUCATINIB [Suspect]
     Active Substance: TUCATINIB
     Dosage: UNK
     Route: 065

REACTIONS (5)
  - Blood potassium abnormal [Unknown]
  - Blood sodium abnormal [Unknown]
  - Blood magnesium abnormal [Unknown]
  - Hospitalisation [Unknown]
  - Brain tumour operation [Unknown]

NARRATIVE: CASE EVENT DATE: 20220701
